FAERS Safety Report 4595164-3 (Version None)
Quarter: 2005Q1

REPORT INFORMATION
  Report Type: 
  Country: None (occurrence: None)
  Receive Date: 20050223
  Receipt Date: 20050210
  Transmission Date: 20050727
  Serious: Yes (Hospitalization, Other)
  Sender: FDA-Public Use
  Company Number: 2005010669

PATIENT
  Age: 56 Year
  Sex: Female
  Weight: 102.0593 kg

DRUGS (20)
  1. BEXTRA [Suspect]
     Indication: POLYMYALGIA RHEUMATICA
     Dosage: 1 IN 1 D,
     Dates: start: 20020101, end: 20050101
  2. PREDNISONE [Concomitant]
  3. SERETIDE MITE (FLUTICASONE PROPINATE, SALMETEROL XINAFOATE) [Concomitant]
  4. SALBUTAMOL (SALBUTAMOL) [Concomitant]
  5. ASPIRIN [Concomitant]
  6. BACLOFEN [Concomitant]
  7. LORAZEPAM [Concomitant]
  8. BELLASPON RETARD (BELLADONNA ALKALOIDS, ERGOTAMINE TARTRATE, PHENOBARB [Concomitant]
  9. NADOLOL [Concomitant]
  10. ESOMEPRAZOLE (ESOMEPRAZOLE) [Concomitant]
  11. NORTRIPTYLINE HCL [Concomitant]
  12. PRAVASTATIN SODIUM [Concomitant]
  13. CONJUGATED ESTROGENS [Concomitant]
  14. MONTELUKAST SODIUM (MONTELUKAST SODIUM) [Concomitant]
  15. CALAMINE/CAMPHOR/DIPHENHYDRAMINE (CALAMINE, CAMPHOR, DIPHENHYDRAMINE) [Concomitant]
  16. LEVOTHYROXINE SODIUM [Concomitant]
  17. TOPIRAMATE [Concomitant]
  18. SERTRALINE HCL [Concomitant]
  19. ALL OTHER THERAPEUTIC PRODUCTS (ALL OTHER THERAPEUTIC PRODUCTS) [Concomitant]
  20. ETODOLAC [Concomitant]

REACTIONS (8)
  - BONE GRAFT [None]
  - CEREBROSPINAL FLUID LEAKAGE [None]
  - DRUG INEFFECTIVE [None]
  - ECZEMA [None]
  - OPERATIVE HAEMORRHAGE [None]
  - PERIARTHRITIS [None]
  - POST PROCEDURAL COMPLICATION [None]
  - THROMBOSIS [None]
